FAERS Safety Report 20692065 (Version 1)
Quarter: 2022Q2

REPORT INFORMATION
  Report Type: Spontaneous
  Country: US (occurrence: None)
  Receive Date: 20220409
  Receipt Date: 20220409
  Transmission Date: 20220720
  Serious: No
  Sender: FDA-Public Use
  Company Number: 2022A132193

PATIENT
  Sex: Female
  Weight: 99.8 kg

DRUGS (1)
  1. FARXIGA [Suspect]
     Active Substance: DAPAGLIFLOZIN PROPANEDIOL
     Indication: Kidney infection
     Route: 048

REACTIONS (4)
  - Skin laceration [Not Recovered/Not Resolved]
  - Dysuria [Not Recovered/Not Resolved]
  - Kidney infection [Unknown]
  - Intentional product misuse [Recovered/Resolved]
